FAERS Safety Report 7883408 (Version 12)
Quarter: 2012Q4

REPORT INFORMATION
  Report Type: 
  Country: CA (occurrence: CA)
  Receive Date: 20110404
  Receipt Date: 20120906
  Transmission Date: 20130627
  Serious: Yes (Hospitalization, Other)
  Sender: FDA-Public Use
  Company Number: PHHY2011CA24179

PATIENT
  Age: 59 None
  Sex: Male
  Weight: 97.96 kg

DRUGS (3)
  1. SANDOSTATIN LAR [Suspect]
     Indication: CARCINOID TUMOUR
     Dosage: 30 mg, every 4 weeks
     Route: 030
     Dates: start: 20110318
  2. SANDOSTATIN LAR [Suspect]
     Dosage: 30 mg, QMO
     Route: 030
  3. SANDOSTATIN LAR [Suspect]
     Dosage: 30 mg, every 4 weeks
     Route: 030

REACTIONS (18)
  - Post procedural haemorrhage [Unknown]
  - Pancreatic carcinoma [Unknown]
  - Secretion discharge [Unknown]
  - Pyelonephritis [Unknown]
  - Haematuria [Unknown]
  - Dysuria [Unknown]
  - Syncope [Unknown]
  - Loss of consciousness [Unknown]
  - Hypoglycaemia [Unknown]
  - Weight increased [Unknown]
  - Incisional hernia [Unknown]
  - Metastases to spine [Unknown]
  - Injection site reaction [Unknown]
  - Influenza like illness [Unknown]
  - Malaise [Unknown]
  - Chills [Unknown]
  - Injection site pain [Unknown]
  - Alopecia [Recovered/Resolved]
